FAERS Safety Report 7229651-6 (Version None)
Quarter: 2011Q1

REPORT INFORMATION
  Report Type: 
  Country: None (occurrence: None)
  Receive Date: 20110117
  Receipt Date: 20110105
  Transmission Date: 20110831
  Serious: Yes (Other)
  Sender: FDA-Public Use
  Company Number: PHHY2011US01108

PATIENT
  Age: 6 Year
  Sex: Male

DRUGS (3)
  1. FOCALIN [Suspect]
     Indication: ATTENTION DEFICIT/HYPERACTIVITY DISORDER
     Dosage: 5 MG, QD
  2. FOCALIN [Suspect]
     Dosage: 10 MG, QD
  3. PALIPERIDONE [Suspect]
     Indication: ATTENTION DEFICIT/HYPERACTIVITY DISORDER
     Dosage: 6 MG, UNK
     Route: 048

REACTIONS (2)
  - SUICIDAL IDEATION [None]
  - AGGRESSION [None]
